FAERS Safety Report 5119048-7 (Version None)
Quarter: 2006Q3

REPORT INFORMATION
  Report Type: 
  Country: None (occurrence: None)
  Receive Date: 20060927
  Receipt Date: 20060919
  Transmission Date: 20061208
  Serious: Yes (Other)
  Sender: FDA-Public Use
  Company Number: 2006113241

PATIENT
  Age: 19 Year
  Sex: Male
  Weight: 113.3993 kg

DRUGS (2)
  1. XANAX [Suspect]
     Indication: ANXIETY
     Dosage: 2 MG (2 MG, 1 IN 1 D), ORAL
     Route: 048
     Dates: start: 20040101
  2. XANAX [Suspect]
     Indication: SLEEP DISORDER
     Dosage: 2 MG (2 MG, 1 IN 1 D), ORAL
     Route: 048
     Dates: start: 20040101

REACTIONS (7)
  - CONVULSION [None]
  - COORDINATION ABNORMAL [None]
  - FEELING ABNORMAL [None]
  - HEADACHE [None]
  - INJURY [None]
  - LOSS OF CONSCIOUSNESS [None]
  - TREATMENT NONCOMPLIANCE [None]
